FAERS Safety Report 8685342 (Version 3)
Quarter: 2012Q4

REPORT INFORMATION
  Report Type: 
  Country: US (occurrence: US)
  Receive Date: 20120726
  Receipt Date: 20120917
  Transmission Date: 20130627
  Serious: No
  Sender: FDA-Public Use
  Company Number: US-B.I. PHARMACEUTICALS,INC./RIDGEFIELD-2012-BP-16261BP

PATIENT
  Age: 68 None
  Sex: Female

DRUGS (5)
  1. SPIRIVA [Suspect]
     Indication: CHRONIC OBSTRUCTIVE PULMONARY DISEASE
     Dosage: 18 mcg
     Route: 055
     Dates: start: 201107
  2. ADVAIR [Concomitant]
     Indication: CHRONIC OBSTRUCTIVE PULMONARY DISEASE
     Route: 055
     Dates: start: 2000, end: 20120620
  3. ENABLEX [Concomitant]
     Indication: URINARY INCONTINENCE
     Route: 048
     Dates: start: 2002
  4. XANAX [Concomitant]
     Indication: TREMOR
     Dosage: 0.375 mg
     Route: 048
  5. ALBUTEROL [Concomitant]
     Dosage: 6 puf
     Route: 055

REACTIONS (13)
  - Aphonia [Not Recovered/Not Resolved]
  - Throat irritation [Not Recovered/Not Resolved]
  - Cough [Not Recovered/Not Resolved]
  - Vomiting [Not Recovered/Not Resolved]
  - Throat irritation [Not Recovered/Not Resolved]
  - Eye pain [Not Recovered/Not Resolved]
  - Contusion [Recovered/Resolved]
  - Vessel perforation [Recovered/Resolved]
  - Contusion [Recovered/Resolved]
  - Contusion [Recovered/Resolved]
  - Sensation of foreign body [Not Recovered/Not Resolved]
  - Laryngospasm [Not Recovered/Not Resolved]
  - Dysphagia [Not Recovered/Not Resolved]
